FAERS Safety Report 17841509 (Version 1)
Quarter: 2020Q2

REPORT INFORMATION
  Report Type: Spontaneous
  Country: US (occurrence: US)
  Receive Date: 20200529
  Receipt Date: 20200529
  Transmission Date: 20200714
  Serious: Yes (Death, Hospitalization, Other)
  Sender: FDA-Public Use
  Company Number: US-B.I. PHARMACEUTICALS,INC./RIDGEFIELD-2020-US-026876

PATIENT
  Age: 76 Year
  Sex: Male

DRUGS (1)
  1. PRADAXA [Suspect]
     Active Substance: DABIGATRAN ETEXILATE MESYLATE
     Indication: ATRIAL FIBRILLATION
     Dosage: 110 MG TWICE A DAY
     Route: 065
     Dates: start: 201107

REACTIONS (8)
  - Chronic obstructive pulmonary disease [Unknown]
  - Cardiac failure congestive [Fatal]
  - Dysphagia [Not Recovered/Not Resolved]
  - Volvulus [Fatal]
  - Dementia [Fatal]
  - Asthma [Unknown]
  - Pneumonia aspiration [Fatal]
  - Off label use [Unknown]

NARRATIVE: CASE EVENT DATE: 201107
